FAERS Safety Report 5116047-6 (Version None)
Quarter: 2006Q3

REPORT INFORMATION
  Report Type: 
  Country: None (occurrence: None)
  Receive Date: 20060927
  Receipt Date: 20060321
  Transmission Date: 20061208
  Serious: No
  Sender: FDA-Public Use
  Company Number: US-BRISTOL-MYERS SQUIBB COMPANY-13323134

PATIENT
  Age: 41 Year
  Sex: Male

DRUGS (1)
  1. DEFINITY [Suspect]
     Route: 040
     Dates: start: 20060320

REACTIONS (5)
  - BLOOD PRESSURE DECREASED [None]
  - FLUSHING [None]
  - INCONTINENCE [None]
  - PRURITUS [None]
  - URTICARIA [None]
